FAERS Safety Report 5728555-5 (Version None)
Quarter: 2008Q2

REPORT INFORMATION
  Report Type: 
  Country: None (occurrence: None)
  Receive Date: 20080506
  Receipt Date: 20080430
  Transmission Date: 20081010
  Serious: Yes (Other)
  Sender: FDA-Public Use
  Company Number: PHNU2008DE01704

PATIENT
  Age: 56 Year
  Sex: Female

DRUGS (3)
  1. RASILEZ [Suspect]
     Indication: HYPERTENSION
     Dosage: 1 DF, QD
     Route: 048
     Dates: start: 20071203
  2. OLMETEC [Concomitant]
     Dosage: 40 MG
  3. NITROGLYCERIN [Concomitant]

REACTIONS (3)
  - CIRCULATORY COLLAPSE [None]
  - HYPERTENSION [None]
  - HYPOTENSION [None]
